FAERS Safety Report 9230820 (Version 2)
Quarter: 2013Q2

REPORT INFORMATION
  Report Type: Spontaneous
  Country: AU (occurrence: None)
  Receive Date: 20130411
  Receipt Date: 20130522
  Transmission Date: 20140414
  Serious: Yes (Hospitalization)
  Sender: FDA-Public Use
  Company Number: AUR-APL-2013-02934

PATIENT
  Age: 64 Year
  Sex: Male
  Weight: 147 kg

DRUGS (20)
  1. HYDRALAZINE (HYDRALAZINE) [Concomitant]
  2. QUINAPRIL (QUINAPRIL) [Concomitant]
  3. NICORANDIL (NICORANDIL) [Concomitant]
  4. TIOTROPIUM (TIOTROPIUM) [Concomitant]
  5. METFORMIN (METFORMIN) [Suspect]
     Indication: PRODUCT USED FOR UNKNOWN INDICATION
     Dates: end: 20130101
  6. CARVEDILOL (CARVEDILOL) [Suspect]
     Indication: PRODUCT USED FOR UNKNOWN INDICATION
     Dosage: 50 MG (25 MG, 2 IN 1 D), ORAL
     Route: 048
  7. CANDESARTAN [Suspect]
     Indication: PRODUCT USED FOR UNKNOWN INDICATION
     Dates: end: 20130101
  8. INSPRA [Suspect]
     Indication: CARDIAC FAILURE
     Dates: start: 20110227, end: 20130101
  9. GLICLAZIDE (GLICLAZIDE) [Suspect]
     Indication: PRODUCT USED FOR UNKNOWN INDICATION
     Dates: end: 20130101
  10. FRUSEMIDE (FUROSEMIDE) [Suspect]
     Indication: PRODUCT USED FOR UNKNOWN INDICATION
  11. PERHEXILINE [Suspect]
     Indication: PRODUCT USED FOR UNKNOWN INDICATION
     Dosage: 200MG MANE 100MG NOCTE, ORAL
     Route: 048
  12. SOTALOL [Suspect]
     Indication: PRODUCT USED FOR UNKNOWN INDICATION
     Dosage: 240MG MANE 160MG NOCTE, ORAL
     Route: 048
  13. COPLAVIX [Concomitant]
  14. IVABRADINE (IVABRADINE) [Concomitant]
  15. PRAZOSIN (PRAZOSIN) [Concomitant]
  16. DIGOXIN (DIGOXIN) [Concomitant]
  17. LANTUS (INSULIN GLARGINE) [Concomitant]
  18. NOVORAPID (INSULIN ASPART) [Concomitant]
  19. EZETIMIBE (EZETIMIBE) [Concomitant]
  20. ROSUVASTATIN (ROSUVASTATIN) [Concomitant]

REACTIONS (4)
  - Renal failure acute [None]
  - Hypotension [None]
  - Presyncope [None]
  - Polymedication [None]
